FAERS Safety Report 13178576 (Version 3)
Quarter: 2017Q4

REPORT INFORMATION
  Report Type: Report from Study
  Country: US (occurrence: US)
  Receive Date: 20170202
  Receipt Date: 20171013
  Transmission Date: 20180320
  Serious: Yes (Death, Life-Threatening, Hospitalization, Other)
  Sender: FDA-Public Use
  Company Number: US-AMGEN-USACT2016175174

PATIENT
  Age: 54 Year
  Sex: Male
  Weight: 95.25 kg

DRUGS (4)
  1. CARFILZOMIB [Suspect]
     Active Substance: CARFILZOMIB
     Indication: PLASMA CELL MYELOMA
     Dosage: UNK MG, PER CHEMO REGIM
     Route: 065
     Dates: start: 20161102, end: 20161117
  2. ASPIRIN. [Concomitant]
     Active Substance: ASPIRIN
     Dosage: UNK
  3. LENALIDOMIDE [Suspect]
     Active Substance: LENALIDOMIDE
     Indication: PLASMA CELL MYELOMA
     Dosage: UNK MG, PER CHEMO REGIM
     Route: 065
     Dates: start: 20161102, end: 20161122
  4. DEXAMETHASONE. [Suspect]
     Active Substance: DEXAMETHASONE
     Indication: PLASMA CELL MYELOMA
     Dosage: UNK MG, PER CHEMO REGIM
     Route: 065
     Dates: start: 20161102, end: 20161122

REACTIONS (5)
  - Cardiac failure [Recovered/Resolved]
  - Pulmonary embolism [Fatal]
  - Respiratory failure [Recovered/Resolved]
  - Alanine aminotransferase increased [Recovered/Resolved]
  - Aspartate aminotransferase increased [Recovered/Resolved]

NARRATIVE: CASE EVENT DATE: 20161201
